FAERS Safety Report 8910234 (Version 3)
Quarter: 2012Q4

REPORT INFORMATION
  Report Type: 
  Country: JP (occurrence: JP)
  Receive Date: 20121115
  Receipt Date: 20121211
  Transmission Date: 20130627
  Serious: Yes (Hospitalization, Other)
  Sender: FDA-Public Use
  Company Number: JP-VERTEX PHARMACEUTICAL INC.-AE-2012-009099

PATIENT
  Age: 70 Year
  Sex: Male

DRUGS (17)
  1. TELAVIC [Suspect]
     Indication: CHRONIC HEPATITIS C
     Dosage: 1500 mg, qd
     Route: 048
     Dates: start: 20120417, end: 20120524
  2. TELAVIC [Suspect]
     Dosage: 1000 mg, qd
     Route: 048
     Dates: start: 20120525, end: 20120615
  3. TELAVIC [Suspect]
     Dosage: 1000 mg, qd
     Route: 048
     Dates: start: 20120622, end: 20120706
  4. PEGINTRON [Suspect]
     Indication: CHRONIC HEPATITIS C
     Dosage: 1.5 ?g/kg, qw
     Route: 058
     Dates: start: 20120417, end: 20120629
  5. REBETOL [Suspect]
     Indication: CHRONIC HEPATITIS C
     Dosage: 600 mg, qd
     Route: 048
     Dates: start: 20120417, end: 20120510
  6. REBETOL [Suspect]
     Dosage: 200 mg, qd
     Route: 048
     Dates: start: 20120511, end: 20120706
  7. PARIET [Concomitant]
     Dosage: 10 mg, qd
     Route: 048
  8. TAMSULOSIN HYDROCHLORIDE [Concomitant]
     Dosage: 0.2 mg, qd
     Route: 048
  9. NORVASC [Concomitant]
     Dosage: 2.5 mg, qd
     Route: 048
  10. FEROTYM [Concomitant]
     Dosage: 2 mg, qd
     Route: 048
  11. LIVALO [Concomitant]
     Dosage: 2 mg, qd
     Route: 048
  12. EPADEL                             /01682401/ [Concomitant]
     Dosage: 1800 mg, qd
     Route: 048
  13. CLARITIN REDITABS [Concomitant]
     Dosage: 10 mg, qd
     Route: 048
  14. PREDONINE                          /00016201/ [Concomitant]
     Dosage: 20 mg, qd
     Route: 048
     Dates: start: 20120604
  15. PREDONINE                          /00016201/ [Concomitant]
     Dosage: 12.5 mg, qd
     Route: 048
  16. PREDONINE                          /00016201/ [Concomitant]
     Dosage: 30 mg, qd
     Route: 048
  17. PREDONINE                          /00016201/ [Concomitant]
     Dosage: 5 mg, qd
     Route: 048
     Dates: end: 20120831

REACTIONS (5)
  - Stevens-Johnson syndrome [Recovered/Resolved]
  - Anaemia [Not Recovered/Not Resolved]
  - Anaemia [Not Recovered/Not Resolved]
  - Platelet count decreased [Not Recovered/Not Resolved]
  - Platelet count decreased [Not Recovered/Not Resolved]
